FAERS Safety Report 8266906-0 (Version None)
Quarter: 2012Q2

REPORT INFORMATION
  Report Type: 
  Country: None (occurrence: None)
  Receive Date: 20120404
  Receipt Date: 20120404
  Transmission Date: 20120825
  Serious: Yes (Hospitalization)
  Sender: FDA-Public Use
  Company Number: None

PATIENT
  Sex: Female
  Weight: 17.8 kg

DRUGS (2)
  1. ELSPAR [Suspect]
     Dosage: 9240 MG
  2. CYTARABINE [Suspect]
     Dosage: 9120 MG

REACTIONS (30)
  - BLOOD CREATININE INCREASED [None]
  - ABDOMINAL DISTENSION [None]
  - RENAL FAILURE [None]
  - CONTINUOUS HAEMODIAFILTRATION [None]
  - HYPOTENSION [None]
  - ENCEPHALITIS [None]
  - CEREBRAL INFARCTION [None]
  - ASPERGILLOSIS [None]
  - PYREXIA [None]
  - ABDOMINAL PAIN [None]
  - LOBAR PNEUMONIA [None]
  - HYPOPERFUSION [None]
  - ABDOMINAL DISCOMFORT [None]
  - RESPIRATORY DISORDER [None]
  - CENTRAL NERVOUS SYSTEM LESION [None]
  - CARDIOVASCULAR DISORDER [None]
  - NEUROLOGICAL DECOMPENSATION [None]
  - SYSTEMIC INFLAMMATORY RESPONSE SYNDROME [None]
  - LUNG DISORDER [None]
  - BACTERIAL TEST POSITIVE [None]
  - PATHOGEN RESISTANCE [None]
  - PLEURITIC PAIN [None]
  - SEPTIC SHOCK [None]
  - BRONCHIAL OBSTRUCTION [None]
  - PULMONARY INFARCTION [None]
  - RENAL INFARCT [None]
  - COAGULOPATHY [None]
  - LOWER RESPIRATORY TRACT INFECTION FUNGAL [None]
  - PLEURAL EFFUSION [None]
  - ANURIA [None]
